FAERS Safety Report 25064859 (Version 1)
Quarter: 2025Q1

REPORT INFORMATION
  Report Type: Spontaneous
  Country: JP (occurrence: JP)
  Receive Date: 20250311
  Receipt Date: 20250311
  Transmission Date: 20250409
  Serious: Yes (Other)
  Sender: Kenvue
  Company Number: JP-KENVUE-20230153866

PATIENT

DRUGS (1)
  1. MINOXIDIL [Suspect]
     Active Substance: MINOXIDIL
     Indication: Androgenetic alopecia
     Dosage: 1 MILLILITER, TWICE A DAY
     Route: 061

REACTIONS (4)
  - Nasopharyngeal cancer [Not Recovered/Not Resolved]
  - Cutaneous symptom [Recovered/Resolved]
  - Product quality issue [Unknown]
  - Accidental exposure to product [Unknown]
